FAERS Safety Report 5594646-5 (Version None)
Quarter: 2008Q1

REPORT INFORMATION
  Report Type: 
  Country: None (occurrence: None)
  Receive Date: 20080115
  Receipt Date: 20080102
  Transmission Date: 20080703
  Serious: Yes (Death, Hospitalization)
  Sender: FDA-Public Use
  Company Number: DSA_31146_2008

PATIENT
  Age: 94 Year
  Sex: Female

DRUGS (6)
  1. ENALAPRIL MALEATE [Suspect]
     Indication: HYPERTENSION
     Dosage: (2.5 MG QD ORAL)
     Route: 048
     Dates: start: 20071012, end: 20071022
  2. ACETAMINOPHEN [Concomitant]
  3. AMOXICILLIN + CLAVULANATE POTASSIUM [Concomitant]
  4. BISOPROLOL FUMARATE [Concomitant]
  5. PANTOPRAZOLE SODIUM [Concomitant]
  6. ROXITHROMYCIN [Concomitant]

REACTIONS (7)
  - ALANINE AMINOTRANSFERASE INCREASED [None]
  - ASPARTATE AMINOTRANSFERASE INCREASED [None]
  - CACHEXIA [None]
  - DEPRESSION [None]
  - DIET REFUSAL [None]
  - SPUTUM CULTURE POSITIVE [None]
  - TUBERCULOSIS [None]
